FAERS Safety Report 24126250 (Version 1)
Quarter: 2024Q3

REPORT INFORMATION
  Report Type: Spontaneous
  Country: US (occurrence: None)
  Receive Date: 20240721
  Receipt Date: 20240721
  Transmission Date: 20241017
  Serious: No
  Sender: Public
  Company Number: None

PATIENT
  Age: 23 Year
  Sex: Female
  Weight: 126.45 kg

DRUGS (2)
  1. ZEPBOUND [Suspect]
     Active Substance: TIRZEPATIDE
  2. Yaz birth control [Concomitant]

REACTIONS (2)
  - Lymphadenopathy [None]
  - Lymph node pain [None]

NARRATIVE: CASE EVENT DATE: 20240718
